FAERS Safety Report 24457753 (Version 1)
Quarter: 2024Q4

REPORT INFORMATION
  Report Type: Report from Study
  Country: PK (occurrence: PK)
  Receive Date: 20241018
  Receipt Date: 20241018
  Transmission Date: 20250114
  Serious: Yes (Other)
  Sender: ROCHE
  Company Number: PK-ROCHE-RCA5198499

PATIENT
  Age: 65 Year
  Sex: Male

DRUGS (8)
  1. AVASTIN [Suspect]
     Active Substance: BEVACIZUMAB
     Indication: Hepatocellular carcinoma
     Dosage: ONGOING: YES
     Route: 042
     Dates: start: 20240104
  2. AVASTIN [Suspect]
     Active Substance: BEVACIZUMAB
     Dosage: ONGOING: YES
     Route: 042
     Dates: start: 20240104
  3. AVASTIN [Suspect]
     Active Substance: BEVACIZUMAB
     Dosage: ONGOING: YES
     Route: 042
     Dates: start: 20240104
  4. AVASTIN [Suspect]
     Active Substance: BEVACIZUMAB
     Dosage: ONGOING: YES
     Route: 042
     Dates: start: 20240104
  5. AVASTIN [Suspect]
     Active Substance: BEVACIZUMAB
     Dosage: ONGOING: YES
     Route: 042
     Dates: start: 20240104
  6. AVASTIN [Suspect]
     Active Substance: BEVACIZUMAB
     Dosage: ONGOING: YES
     Route: 042
     Dates: start: 20240104
  7. TECENTRIQ [Suspect]
     Active Substance: ATEZOLIZUMAB
     Indication: Hepatocellular carcinoma
     Dosage: ONGOING: YES
     Route: 042
     Dates: start: 20240104
  8. TECENTRIQ [Suspect]
     Active Substance: ATEZOLIZUMAB
     Dosage: ONGOING: YES
     Route: 042
     Dates: start: 20240104

REACTIONS (1)
  - Metastases to bone [Unknown]

NARRATIVE: CASE EVENT DATE: 20241008
